FAERS Safety Report 10348979 (Version 2)
Quarter: 2014Q3

REPORT INFORMATION
  Report Type: Spontaneous
  Country: US (occurrence: US)
  Receive Date: 20140729
  Receipt Date: 20140815
  Transmission Date: 20150326
  Serious: Yes (Hospitalization, Disabling, Other)
  Sender: FDA-Public Use
  Company Number: US-009507513-1407USA010252

PATIENT
  Age: 60 Year
  Sex: Female

DRUGS (19)
  1. NORTRIPTYLINE [Concomitant]
     Active Substance: NORTRIPTYLINE
  2. TYLENOL [Concomitant]
     Active Substance: ACETAMINOPHEN
  3. FLUOXETINE [Concomitant]
     Active Substance: FLUOXETINE\FLUOXETINE HYDROCHLORIDE
  4. PRILOSEC [Concomitant]
     Active Substance: OMEPRAZOLE MAGNESIUM
     Route: 048
  5. SENNA [Concomitant]
     Active Substance: SENNA LEAF\SENNOSIDES\SENNOSIDES A AND B
  6. HYCET [Concomitant]
     Active Substance: ACETAMINOPHEN\HYDROCODONE BITARTRATE
  7. LACTULOSE. [Concomitant]
     Active Substance: LACTULOSE
  8. MORPHINE [Concomitant]
     Active Substance: MORPHINE
  9. SINGULAIR [Suspect]
     Active Substance: MONTELUKAST SODIUM
     Indication: ASTHMA
     Dosage: 10 MG, ONCE DAILY
     Route: 048
     Dates: start: 2005
  10. PROVENTIL [Concomitant]
     Active Substance: ALBUTEROL
  11. LEVOTHYROXINE SODIUM. [Concomitant]
     Active Substance: LEVOTHYROXINE SODIUM
     Route: 048
  12. LOVENOX [Concomitant]
     Active Substance: ENOXAPARIN SODIUM
  13. QVAR [Concomitant]
     Active Substance: BECLOMETHASONE DIPROPIONATE
  14. ATIVAN [Concomitant]
     Active Substance: LORAZEPAM
  15. FLUTICASONE [Concomitant]
     Active Substance: FLUTICASONE\FLUTICASONE PROPIONATE
  16. GABAPENTIN. [Concomitant]
     Active Substance: GABAPENTIN
  17. TESSALON [Concomitant]
     Active Substance: BENZONATATE
  18. ZYRTEC [Concomitant]
     Active Substance: CETIRIZINE HYDROCHLORIDE
  19. ZOFRAN [Concomitant]
     Active Substance: ONDANSETRON HYDROCHLORIDE

REACTIONS (6)
  - Dysphagia [Unknown]
  - Gastrointestinal tube insertion [Recovered/Resolved]
  - Hospice care [Unknown]
  - General physical health deterioration [Unknown]
  - Wrong technique in drug usage process [Unknown]
  - Breast cancer [Unknown]

NARRATIVE: CASE EVENT DATE: 2006
